FAERS Safety Report 17635905 (Version 1)
Quarter: 2020Q2

REPORT INFORMATION
  Report Type: Spontaneous
  Country: NO (occurrence: NO)
  Receive Date: 20200406
  Receipt Date: 20200406
  Transmission Date: 20200713
  Serious: Yes (Hospitalization)
  Sender: FDA-Public Use
  Company Number: NO-UCBSA-2020013851

PATIENT
  Age: 61 Year
  Sex: Female

DRUGS (8)
  1. ELIQUIS [Concomitant]
     Active Substance: APIXABAN
     Indication: PULMONARY EMBOLISM
     Route: 048
  2. LEVAXIN [Concomitant]
     Active Substance: LEVOTHYROXINE SODIUM
     Indication: HYPOTHYROIDISM
     Dosage: 150 MICROGRAMS DAILY 2/7 AND 100 MICROGRAMS DAILY 5/7 DAYS PER WEEK
     Route: 048
  3. VESICARE [Concomitant]
     Active Substance: SOLIFENACIN SUCCINATE
     Route: 048
  4. CYMBALTA [Concomitant]
     Active Substance: DULOXETINE HYDROCHLORIDE
     Indication: PRODUCT USED FOR UNKNOWN INDICATION
     Route: 048
  5. KEPPRA [Suspect]
     Active Substance: LEVETIRACETAM
     Indication: SEIZURE PROPHYLAXIS
     Dosage: 500 MILLIGRAM, 2X/DAY (BID)
     Route: 048
     Dates: start: 201703, end: 20191129
  6. KEPPRA [Suspect]
     Active Substance: LEVETIRACETAM
     Indication: OFF LABEL USE
  7. QUETIAPINE. [Concomitant]
     Active Substance: QUETIAPINE
     Indication: PRODUCT USED FOR UNKNOWN INDICATION
     Dosage: TO BE TAKEN IN THE EVENING
     Route: 048
  8. LITHIONIT [Concomitant]
     Active Substance: LITHIUM SULFATE
     Indication: BIPOLAR DISORDER
     Dosage: 42 MG IN THE MORNING AND 83 MG IN THE EVENING
     Route: 048

REACTIONS (2)
  - Off label use [Unknown]
  - Organising pneumonia [Recovering/Resolving]

NARRATIVE: CASE EVENT DATE: 201703
